FAERS Safety Report 14892815 (Version 5)
Quarter: 2018Q4

REPORT INFORMATION
  Report Type: Report from Study
  Country: CN (occurrence: CN)
  Receive Date: 20180514
  Receipt Date: 20181026
  Transmission Date: 20190204
  Serious: Yes (Hospitalization)
  Sender: FDA-Public Use
  Company Number: PHHY2018CN026474

PATIENT
  Age: 39 Year
  Sex: Male
  Weight: 65 kg

DRUGS (17)
  1. MYFORTIC [Suspect]
     Active Substance: MYCOPHENOLATE SODIUM
     Dosage: 1080 MG, QD
     Route: 048
     Dates: start: 20180113
  2. METOPROLOL TARTRATE. [Concomitant]
     Active Substance: METOPROLOL TARTRATE
     Indication: BLOOD PRESSURE MANAGEMENT
     Dosage: 25 MG, BID
     Route: 048
     Dates: start: 20180104, end: 20180119
  3. CEFOPERAZONE SODIUM AND SULBACTAM SODIUM [Concomitant]
     Active Substance: CEFOPERAZONE SODIUM\SULBACTAM SODIUM
     Indication: PROPHYLAXIS
     Dosage: 2000 MG, BID
     Route: 042
     Dates: start: 20180110, end: 20180116
  4. BASILIXIMAB [Suspect]
     Active Substance: BASILIXIMAB
     Dosage: 20 MG, QD
     Route: 042
     Dates: start: 20180107, end: 20180107
  5. AMBROXOL [Concomitant]
     Active Substance: AMBROXOL
     Indication: PRODUCTIVE COUGH
     Dosage: 30 MG, BID
     Route: 042
     Dates: start: 20180105, end: 20180111
  6. INSULIN [Concomitant]
     Active Substance: INSULIN NOS
     Indication: DIABETES MELLITUS MANAGEMENT
     Dosage: 24 IU, QD
     Route: 042
     Dates: start: 20180104, end: 20180104
  7. CICLOSPORIN [Concomitant]
     Active Substance: CYCLOSPORINE
     Indication: PROPHYLAXIS AGAINST TRANSPLANT REJECTION
     Dosage: 175 MG, BID
     Route: 065
     Dates: start: 20180113
  8. PREDNISONE. [Concomitant]
     Active Substance: PREDNISONE
     Indication: PROPHYLAXIS AGAINST TRANSPLANT REJECTION
     Dosage: 5 MG, QD
     Route: 065
     Dates: start: 20180130
  9. MEGLUMINE ADENOSINE CYCLOPHOSPHATE [Concomitant]
     Indication: PROPHYLAXIS
     Dosage: 180 MG, QD
     Route: 042
     Dates: start: 20180103, end: 20180115
  10. AMBROXOL [Concomitant]
     Active Substance: AMBROXOL
     Dosage: 30 MG, BID
     Route: 055
     Dates: start: 20180105, end: 20180112
  11. FUROSEMIDE. [Concomitant]
     Active Substance: FUROSEMIDE
     Indication: POLYURIA
     Dosage: 40 MG, QD
     Route: 042
     Dates: start: 20180104, end: 20180106
  12. PIPERACILLIN SODIUM [Concomitant]
     Active Substance: PIPERACILLIN SODIUM
     Indication: PROPHYLAXIS
     Dosage: 4500 MG, BID
     Route: 042
     Dates: start: 20180103, end: 20180109
  13. MYFORTIC [Suspect]
     Active Substance: MYCOPHENOLATE SODIUM
     Indication: RENAL TRANSPLANT
     Dosage: 1440 MG, QD
     Route: 048
     Dates: start: 20180103, end: 20180112
  14. COENZYME COMPLEX [Concomitant]
     Active Substance: UNSPECIFIED INGREDIENT
     Indication: PROPHYLAXIS
     Dosage: 400 IU, QD
     Route: 042
     Dates: start: 20180103, end: 20180111
  15. PANTOPRAZOLE SODIUM. [Concomitant]
     Active Substance: PANTOPRAZOLE SODIUM
     Indication: PROPHYLAXIS AGAINST GASTROINTESTINAL ULCER
     Dosage: 40 MG, QD
     Route: 042
     Dates: start: 20180103, end: 20180106
  16. ALPROZOLAM [Concomitant]
     Active Substance: ALPRAZOLAM
     Indication: SLEEP DISORDER
     Dosage: 0.8 MG, QD
     Route: 048
     Dates: start: 20180104, end: 20180104
  17. BASILIXIMAB [Suspect]
     Active Substance: BASILIXIMAB
     Indication: RENAL TRANSPLANT
     Dosage: 20 MG, QD
     Route: 042
     Dates: start: 20180103, end: 20180104

REACTIONS (5)
  - Upper respiratory tract infection [Recovered/Resolved]
  - Alanine aminotransferase increased [Recovered/Resolved]
  - Incision site pain [Recovered/Resolved]
  - White blood cells urine positive [Recovered/Resolved]
  - Protein urine present [Recovered/Resolved]

NARRATIVE: CASE EVENT DATE: 20180104
